FAERS Safety Report 12502376 (Version 1)
Quarter: 2016Q2

REPORT INFORMATION
  Report Type: Spontaneous
  Country: JP (occurrence: JP)
  Receive Date: 20160627
  Receipt Date: 20160627
  Transmission Date: 20160815
  Serious: Yes (Other)
  Sender: FDA-Public Use
  Company Number: PHJP1900JP000847

PATIENT
  Age: 39 Year
  Sex: Male

DRUGS (8)
  1. SANDIMMUN [Suspect]
     Active Substance: CYCLOSPORINE
     Dosage: 260 MG, QD
     Route: 048
     Dates: start: 19890513, end: 19900719
  2. SANDIMMUN [Suspect]
     Active Substance: CYCLOSPORINE
     Indication: BEHCET^S SYNDROME
     Dosage: 245 MG, QD
     Route: 048
     Dates: start: 19880617, end: 19881204
  3. SANDIMMUN [Suspect]
     Active Substance: CYCLOSPORINE
     Dosage: 245 MG, QD
     Route: 048
     Dates: start: 19881228, end: 19890114
  4. SANDIMMUN [Suspect]
     Active Substance: CYCLOSPORINE
     Dosage: 240 MG, QD
     Route: 048
     Dates: start: 19890311, end: 19890512
  5. ENDOXAN [Concomitant]
     Active Substance: CYCLOPHOSPHAMIDE
     Indication: BEHCET^S SYNDROME
     Dosage: 50 MG, QD
     Route: 048
     Dates: start: 19850627, end: 19860217
  6. COLCHICINE. [Concomitant]
     Active Substance: COLCHICINE
     Indication: BEHCET^S SYNDROME
     Dosage: 1 MG, QD
     Route: 048
     Dates: start: 19830418, end: 198806
  7. SANDIMMUN [Suspect]
     Active Substance: CYCLOSPORINE
     Dosage: 220 MG, QD
     Route: 048
     Dates: start: 19890129, end: 19890310
  8. SANDIMMUN [Suspect]
     Active Substance: CYCLOSPORINE
     Dosage: 200 MG, QD
     Route: 048
     Dates: start: 19890115, end: 19890128

REACTIONS (1)
  - Behcet^s syndrome [Recovering/Resolving]
